FAERS Safety Report 13557002 (Version 4)
Quarter: 2018Q2

REPORT INFORMATION
  Report Type: Spontaneous
  Country: IT (occurrence: IT)
  Receive Date: 20170518
  Receipt Date: 20180601
  Transmission Date: 20180711
  Serious: Yes (Other)
  Sender: FDA-Public Use
  Company Number: IT-ASTRAZENECA-2017SE52365

PATIENT
  Age: 26840 Day
  Sex: Female

DRUGS (6)
  1. TRIATEC [Concomitant]
     Dosage: 5.0MG UNKNOWN
     Route: 048
  2. DIBASE [Concomitant]
     Active Substance: CHOLECALCIFEROL
     Dosage: ONE VIAL MONTHLY
     Route: 048
  3. TRIATEC [Concomitant]
     Dosage: 2.5MG UNKNOWN
     Route: 048
  4. ACTONEL [Concomitant]
     Active Substance: RISEDRONATE SODIUM
  5. PANTORC [Concomitant]
     Active Substance: PANTOPRAZOLE SODIUM
     Route: 048
  6. FASLODEX [Suspect]
     Active Substance: FULVESTRANT
     Dosage: 500.0MG UNKNOWN
     Route: 030
     Dates: start: 20170115

REACTIONS (5)
  - Laryngeal oedema [Unknown]
  - Dyspnoea [Unknown]
  - Erythema [Unknown]
  - Throat tightness [Unknown]
  - Application site oedema [Unknown]

NARRATIVE: CASE EVENT DATE: 20170427
